FAERS Safety Report 4865582-4 (Version None)
Quarter: 2005Q4

REPORT INFORMATION
  Report Type: 
  Country: None (occurrence: None)
  Receive Date: 20051220
  Receipt Date: 20051214
  Transmission Date: 20060501
  Serious: Yes (Other)
  Sender: FDA-Public Use
  Company Number: 2005168054

PATIENT
  Sex: Male

DRUGS (2)
  1. NORVASC [Suspect]
     Indication: HYPERTENSION
     Dates: start: 20030101
  2. SELECTOL (CELIPROLOL HYDROCHLORIDE) [Concomitant]

REACTIONS (2)
  - ANKLE FRACTURE [None]
  - ROTATOR CUFF SYNDROME [None]
